FAERS Safety Report 7584429-9 (Version None)
Quarter: 2011Q2

REPORT INFORMATION
  Report Type: 
  Country: None (occurrence: None)
  Receive Date: 20110630
  Receipt Date: 20110628
  Transmission Date: 20111010
  Serious: Yes (Other)
  Sender: FDA-Public Use
  Company Number: US-PFIZER INC-2011144013

PATIENT
  Sex: Female

DRUGS (2)
  1. RELPAX [Suspect]
     Dosage: UNK
  2. DEPAKOTE [Concomitant]
     Dosage: UNK

REACTIONS (2)
  - SLEEP APNOEA SYNDROME [None]
  - MIGRAINE [None]
